FAERS Safety Report 4924170-1 (Version None)
Quarter: 2006Q1

REPORT INFORMATION
  Report Type: 
  Country: None (occurrence: None)
  Receive Date: 20060227
  Receipt Date: 20051123
  Transmission Date: 20060701
  Serious: No
  Sender: FDA-Public Use
  Company Number: US-GLAXOSMITHKLINE-A0584158A

PATIENT
  Sex: Female

DRUGS (3)
  1. WELLBUTRIN XL [Suspect]
     Indication: DEPRESSION
     Dosage: 300MG PER DAY
     Route: 048
  2. PRAVACHOL [Concomitant]
  3. THYROID TAB [Concomitant]
     Indication: HYPOTHYROIDISM

REACTIONS (3)
  - DECREASED APPETITE [None]
  - LIBIDO DECREASED [None]
  - WEIGHT DECREASED [None]
